FAERS Safety Report 25870900 (Version 1)
Quarter: 2025Q4

REPORT INFORMATION
  Report Type: Spontaneous
  Country: US (occurrence: US)
  Receive Date: 20251001
  Receipt Date: 20251001
  Transmission Date: 20260118
  Serious: No
  Sender: MYLAN
  Company Number: US-MYLANLABS-2025M1080874

PATIENT
  Age: 64 Year
  Sex: Female
  Weight: 70.31 kg

DRUGS (44)
  1. ESTRADIOL [Suspect]
     Active Substance: ESTRADIOL
     Indication: Urinary tract infection
     Dosage: UNK, 3XW (ONCE, THREE TIMES A WEEK)
     Dates: start: 202404, end: 20250803
  2. ESTRADIOL [Suspect]
     Active Substance: ESTRADIOL
     Dosage: UNK, 3XW (ONCE, THREE TIMES A WEEK)
     Route: 067
     Dates: start: 202404, end: 20250803
  3. ESTRADIOL [Suspect]
     Active Substance: ESTRADIOL
     Dosage: UNK, 3XW (ONCE, THREE TIMES A WEEK)
     Route: 067
     Dates: start: 202404, end: 20250803
  4. ESTRADIOL [Suspect]
     Active Substance: ESTRADIOL
     Dosage: UNK, 3XW (ONCE, THREE TIMES A WEEK)
     Dates: start: 202404, end: 20250803
  5. ROSUVASTATIN [Concomitant]
     Active Substance: ROSUVASTATIN
     Dosage: 10 MILLIGRAM, QD (DAILY)
  6. ROSUVASTATIN [Concomitant]
     Active Substance: ROSUVASTATIN
     Dosage: 10 MILLIGRAM, QD (DAILY)
     Route: 065
  7. ROSUVASTATIN [Concomitant]
     Active Substance: ROSUVASTATIN
     Dosage: 10 MILLIGRAM, QD (DAILY)
     Route: 065
  8. ROSUVASTATIN [Concomitant]
     Active Substance: ROSUVASTATIN
     Dosage: 10 MILLIGRAM, QD (DAILY)
  9. REPATHA [Concomitant]
     Active Substance: EVOLOCUMAB
     Dosage: 140 MILLIGRAM, Q2W (EVERY TWO WEEKS)
  10. REPATHA [Concomitant]
     Active Substance: EVOLOCUMAB
     Dosage: 140 MILLIGRAM, Q2W (EVERY TWO WEEKS)
     Route: 065
  11. REPATHA [Concomitant]
     Active Substance: EVOLOCUMAB
     Dosage: 140 MILLIGRAM, Q2W (EVERY TWO WEEKS)
     Route: 065
  12. REPATHA [Concomitant]
     Active Substance: EVOLOCUMAB
     Dosage: 140 MILLIGRAM, Q2W (EVERY TWO WEEKS)
  13. ASPIRIN [Concomitant]
     Active Substance: ASPIRIN
     Dosage: UNK (LOW DOSE)
  14. ASPIRIN [Concomitant]
     Active Substance: ASPIRIN
     Dosage: UNK (LOW DOSE)
     Route: 065
  15. ASPIRIN [Concomitant]
     Active Substance: ASPIRIN
     Dosage: UNK (LOW DOSE)
     Route: 065
  16. ASPIRIN [Concomitant]
     Active Substance: ASPIRIN
     Dosage: UNK (LOW DOSE)
  17. FISH OIL [Concomitant]
     Active Substance: FISH OIL
     Dosage: 2 DOSAGE FORM, QD (PER DAY)
  18. FISH OIL [Concomitant]
     Active Substance: FISH OIL
     Dosage: 2 DOSAGE FORM, QD (PER DAY)
     Route: 065
  19. FISH OIL [Concomitant]
     Active Substance: FISH OIL
     Dosage: 2 DOSAGE FORM, QD (PER DAY)
     Route: 065
  20. FISH OIL [Concomitant]
     Active Substance: FISH OIL
     Dosage: 2 DOSAGE FORM, QD (PER DAY)
  21. VITAMIN D [Concomitant]
     Active Substance: VITAMIN D NOS
     Dosage: 1 DOSAGE FORM, QD (PER DAY)
  22. VITAMIN D [Concomitant]
     Active Substance: VITAMIN D NOS
     Dosage: 1 DOSAGE FORM, QD (PER DAY)
     Route: 065
  23. VITAMIN D [Concomitant]
     Active Substance: VITAMIN D NOS
     Dosage: 1 DOSAGE FORM, QD (PER DAY)
     Route: 065
  24. VITAMIN D [Concomitant]
     Active Substance: VITAMIN D NOS
     Dosage: 1 DOSAGE FORM, QD (PER DAY)
  25. FAMOTIDINE [Concomitant]
     Active Substance: FAMOTIDINE
     Dosage: UNK
  26. FAMOTIDINE [Concomitant]
     Active Substance: FAMOTIDINE
     Dosage: UNK
     Route: 065
  27. FAMOTIDINE [Concomitant]
     Active Substance: FAMOTIDINE
     Dosage: UNK
     Route: 065
  28. FAMOTIDINE [Concomitant]
     Active Substance: FAMOTIDINE
     Dosage: UNK
  29. CRANBERRY [Concomitant]
     Active Substance: CRANBERRY
     Dosage: UNK
  30. CRANBERRY [Concomitant]
     Active Substance: CRANBERRY
     Dosage: UNK
     Route: 065
  31. CRANBERRY [Concomitant]
     Active Substance: CRANBERRY
     Dosage: UNK
     Route: 065
  32. CRANBERRY [Concomitant]
     Active Substance: CRANBERRY
     Dosage: UNK
  33. VITAMIN B12 [Concomitant]
     Active Substance: CYANOCOBALAMIN
     Dosage: UNK, QW (WEEKLY)
  34. VITAMIN B12 [Concomitant]
     Active Substance: CYANOCOBALAMIN
     Dosage: UNK, QW (WEEKLY)
     Route: 065
  35. VITAMIN B12 [Concomitant]
     Active Substance: CYANOCOBALAMIN
     Dosage: UNK, QW (WEEKLY)
     Route: 065
  36. VITAMIN B12 [Concomitant]
     Active Substance: CYANOCOBALAMIN
     Dosage: UNK, QW (WEEKLY)
  37. LOSARTAN [Concomitant]
     Active Substance: LOSARTAN
     Indication: Blood pressure abnormal
     Dosage: UNK, QD (5-20 MG DAILY)
  38. LOSARTAN [Concomitant]
     Active Substance: LOSARTAN
     Dosage: UNK, QD (5-20 MG DAILY)
     Route: 065
  39. LOSARTAN [Concomitant]
     Active Substance: LOSARTAN
     Dosage: UNK, QD (5-20 MG DAILY)
     Route: 065
  40. LOSARTAN [Concomitant]
     Active Substance: LOSARTAN
     Dosage: UNK, QD (5-20 MG DAILY)
  41. CYMBALTA [Concomitant]
     Active Substance: DULOXETINE HYDROCHLORIDE
     Dosage: 20 MILLIGRAM, QD (DAILY)
  42. CYMBALTA [Concomitant]
     Active Substance: DULOXETINE HYDROCHLORIDE
     Dosage: 20 MILLIGRAM, QD (DAILY)
     Route: 065
  43. CYMBALTA [Concomitant]
     Active Substance: DULOXETINE HYDROCHLORIDE
     Dosage: 20 MILLIGRAM, QD (DAILY)
     Route: 065
  44. CYMBALTA [Concomitant]
     Active Substance: DULOXETINE HYDROCHLORIDE
     Dosage: 20 MILLIGRAM, QD (DAILY)

REACTIONS (4)
  - Dysmenorrhoea [Not Recovered/Not Resolved]
  - Migraine [Recovered/Resolved]
  - Hot flush [Unknown]
  - Product use in unapproved indication [Unknown]

NARRATIVE: CASE EVENT DATE: 20241114
